FAERS Safety Report 4579885-4 (Version None)
Quarter: 2005Q1

REPORT INFORMATION
  Report Type: 
  Country: None (occurrence: None)
  Receive Date: 20050214
  Receipt Date: 20050204
  Transmission Date: 20050727
  Serious: Yes (Hospitalization)
  Sender: FDA-Public Use
  Company Number: FR-BRISTOL-MYERS SQUIBB COMPANY-12850194

PATIENT
  Age: 78 Year
  Sex: Female

DRUGS (6)
  1. CAPTEA [Suspect]
     Indication: ESSENTIAL HYPERTENSION
     Route: 048
  2. TENSTATEN [Suspect]
     Route: 048
  3. OMEPRAZOLE [Suspect]
     Route: 048
  4. TRIVASTAL [Suspect]
     Route: 048
  5. FONZYLANE [Suspect]
     Route: 048
  6. KARDEGIC [Suspect]
     Route: 048

REACTIONS (1)
  - SYSTEMIC LUPUS ERYTHEMATOSUS [None]
